FAERS Safety Report 16458033 (Version 6)
Quarter: 2019Q3

REPORT INFORMATION
  Report Type: Spontaneous
  Country: US (occurrence: US)
  Receive Date: 20190620
  Receipt Date: 20190913
  Transmission Date: 20191004
  Serious: No
  Sender: FDA-Public Use
  Company Number: US-PFIZER INC-2019255697

PATIENT
  Age: 69 Year
  Sex: Female
  Weight: 75.75 kg

DRUGS (3)
  1. METHYLPREDNISOLONE. [Suspect]
     Active Substance: METHYLPREDNISOLONE
     Indication: OROPHARYNGEAL DISCOMFORT
     Dosage: 5 DF, 1X/DAY
     Dates: start: 20190612
  2. METHYLPREDNISOLONE. [Suspect]
     Active Substance: METHYLPREDNISOLONE
     Indication: SINUSITIS
     Dosage: 6 DF, 1X/DAY
     Dates: start: 20190611
  3. METHYLPREDNISOLONE. [Suspect]
     Active Substance: METHYLPREDNISOLONE
     Indication: HAEMOPTYSIS

REACTIONS (9)
  - Incorrect dose administered [Unknown]
  - Off label use [Unknown]
  - Product label confusion [Unknown]
  - Product use in unapproved indication [Unknown]
  - Energy increased [Not Recovered/Not Resolved]
  - Tremor [Not Recovered/Not Resolved]
  - Palpitations [Unknown]
  - Erythema [Not Recovered/Not Resolved]
  - Feeling hot [Not Recovered/Not Resolved]

NARRATIVE: CASE EVENT DATE: 20190611
